FAERS Safety Report 10314248 (Version 2)
Quarter: 2014Q3

REPORT INFORMATION
  Report Type: Spontaneous
  Country: US (occurrence: US)
  Receive Date: 20140718
  Receipt Date: 20140718
  Transmission Date: 20150326
  Serious: Yes (Death)
  Sender: FDA-Public Use
  Company Number: US-GLAXOSMITHKLINE-A0838840A

PATIENT
  Age: 62 Year
  Sex: Male
  Weight: 86.4 kg

DRUGS (1)
  1. AVANDIA [Suspect]
     Active Substance: ROSIGLITAZONE MALEATE
     Indication: DIABETES MELLITUS
     Dosage: 8MG TWICE PER DAY
     Route: 048
     Dates: end: 20050402

REACTIONS (3)
  - Myocardial infarction [Unknown]
  - Sudden cardiac death [Fatal]
  - Cardiac disorder [Unknown]
